FAERS Safety Report 7457619-3 (Version None)
Quarter: 2011Q2

REPORT INFORMATION
  Report Type: 
  Country: None (occurrence: None)
  Receive Date: 20110504
  Receipt Date: 20110426
  Transmission Date: 20111010
  Serious: Yes (Hospitalization)
  Sender: FDA-Public Use
  Company Number: US-GENZYME-HECT-1000138

PATIENT

DRUGS (4)
  1. ATENOLOL [Concomitant]
     Indication: HYPERTENSION
  2. DILTIAZEM [Concomitant]
     Indication: HYPERTENSION
  3. HECTOROL [Suspect]
     Indication: HYPERPARATHYROIDISM SECONDARY
     Dosage: 0.5 MCG, QD
     Dates: start: 20091001
  4. COZAAR [Concomitant]
     Indication: HYPERTENSION
     Dosage: UNK
     Dates: start: 20110401

REACTIONS (5)
  - HEART RATE DECREASED [None]
  - DYSPNOEA [None]
  - ATRIAL FIBRILLATION [None]
  - FATIGUE [None]
  - HYPERTENSION [None]
